FAERS Safety Report 4765571-4 (Version None)
Quarter: 2005Q3

REPORT INFORMATION
  Report Type: 
  Country: None (occurrence: None)
  Receive Date: 20050906
  Receipt Date: 20050803
  Transmission Date: 20060218
  Serious: Yes (Hospitalization, Other)
  Sender: FDA-Public Use
  Company Number: 2005111183

PATIENT
  Sex: Female

DRUGS (2)
  1. SILDENAFIL CITRATE [Suspect]
     Indication: PULMONARY HYPERTENSION
     Dosage: UNKNOWN
     Route: 065
     Dates: start: 20050601
  2. DIURETICS (DIURETICS) [Concomitant]

REACTIONS (3)
  - FALL [None]
  - RESPIRATORY ARREST [None]
  - RIGHT VENTRICULAR FAILURE [None]
